FAERS Safety Report 11140420 (Version 1)
Quarter: 2015Q2

REPORT INFORMATION
  Report Type: Spontaneous
  Country: US (occurrence: US)
  Receive Date: 20150525
  Receipt Date: 20150525
  Transmission Date: 20150821
  Serious: Yes (Other)
  Sender: FDA-Public Use
  Company Number: US-JNJFOC-20130616100

PATIENT
  Age: 21 Year
  Sex: Male

DRUGS (2)
  1. RISPERIDONE. [Suspect]
     Active Substance: RISPERIDONE
     Indication: AUTISM
     Dosage: BETWEEN 2002 AND 2009
     Route: 048
  2. RISPERIDONE. [Suspect]
     Active Substance: RISPERIDONE
     Indication: AUTISM
     Route: 048
     Dates: start: 2009, end: 201207

REACTIONS (1)
  - Priapism [Recovered/Resolved]

NARRATIVE: CASE EVENT DATE: 201108
